FAERS Safety Report 9228722 (Version 1)
Quarter: 2013Q2

REPORT INFORMATION
  Report Type: Spontaneous
  Country: US (occurrence: US)
  Receive Date: 20130412
  Receipt Date: 20130412
  Transmission Date: 20140414
  Serious: Yes (Other)
  Sender: FDA-Public Use
  Company Number: US-JNJFOC-20130315963

PATIENT
  Age: 51 Year
  Sex: Male
  Weight: 77.11 kg

DRUGS (1)
  1. BENADRYL UNSPECIFIED [Suspect]
     Indication: SLEEP DISORDER THERAPY
     Dosage: 1-2 TABLETS, 25MG EACH
     Route: 048
     Dates: start: 19920404

REACTIONS (4)
  - Amnesia [Recovered/Resolved]
  - Mental impairment [Recovered/Resolved]
  - Off label use [Unknown]
  - Therapeutic response unexpected [Unknown]
